FAERS Safety Report 15496711 (Version 1)
Quarter: 2018Q4

REPORT INFORMATION
  Report Type: Spontaneous
  Country: DK (occurrence: DK)
  Receive Date: 20181014
  Receipt Date: 20181014
  Transmission Date: 20190205
  Serious: Yes (Other)
  Sender: FDA-Public Use
  Company Number: PHHY2018DK121383

PATIENT
  Age: 57 Year
  Sex: Female

DRUGS (1)
  1. CARVEDILOL. [Suspect]
     Active Substance: CARVEDILOL
     Indication: CARDIAC FAILURE
     Dosage: UNK
     Route: 048

REACTIONS (6)
  - Renal impairment [Unknown]
  - Blindness transient [Unknown]
  - Papilloedema [Unknown]
  - Visual impairment [Unknown]
  - Dizziness [Unknown]
  - Tunnel vision [Unknown]

NARRATIVE: CASE EVENT DATE: 2011
